FAERS Safety Report 25505069 (Version 1)
Quarter: 2025Q3

REPORT INFORMATION
  Report Type: Spontaneous
  Country: US (occurrence: US)
  Receive Date: 20250702
  Receipt Date: 20250702
  Transmission Date: 20251020
  Serious: No
  Sender: SAREPTA THERAPEUTICS
  Company Number: US-SAREPTA THERAPEUTICS INC.-SRP2024-005082

PATIENT
  Age: 21 Year
  Sex: Male
  Weight: 78 kg

DRUGS (10)
  1. EXONDYS 51 [Suspect]
     Active Substance: ETEPLIRSEN
     Indication: Duchenne muscular dystrophy
     Route: 042
     Dates: start: 20170302, end: 20240905
  2. EXONDYS 51 [Suspect]
     Active Substance: ETEPLIRSEN
     Route: 042
     Dates: start: 20240919
  3. LISINOPRIL [Concomitant]
     Active Substance: LISINOPRIL
     Indication: Product used for unknown indication
     Dosage: 10 MILLIGRAM, QD
     Route: 048
     Dates: start: 20190208
  4. PREDNISONE [Concomitant]
     Active Substance: PREDNISONE
     Indication: Malaise
     Route: 048
     Dates: start: 20200901
  5. PREDNISONE [Concomitant]
     Active Substance: PREDNISONE
     Route: 048
     Dates: start: 20190809
  6. VITAMIN D3 [Concomitant]
     Active Substance: CHOLECALCIFEROL
     Indication: Product used for unknown indication
     Dosage: 1000 INTERNATIONAL UNIT, QD
     Route: 048
     Dates: start: 20190809
  7. CALCIUM CARBONATE [Concomitant]
     Active Substance: CALCIUM CARBONATE
     Indication: Product used for unknown indication
     Dosage: 1000 MILLIGRAM, QD, 2 TABS DAILY
     Route: 048
     Dates: start: 20190809
  8. CALCIUM CARBONATE;MAGNESIUM HYDROXIDE [Concomitant]
     Indication: Product used for unknown indication
     Dosage: 10 MG/800MG/165MG, QD
     Route: 048
     Dates: start: 20190809
  9. MAGNESIUM CITRATE [Concomitant]
     Active Substance: MAGNESIUM CITRATE
     Indication: Anxiety
     Route: 048
     Dates: start: 20200423
  10. MULTIVITAMIN PLUS FISH OIL [Concomitant]
     Indication: Product used for unknown indication
     Dosage: UNK, QD, 4 GUMMIES
     Route: 048
     Dates: start: 20210226

REACTIONS (2)
  - Intentional dose omission [Unknown]
  - No adverse event [Unknown]

NARRATIVE: CASE EVENT DATE: 20240912
